FAERS Safety Report 26218835 (Version 1)
Quarter: 2025Q4

REPORT INFORMATION
  Report Type: Spontaneous
  Country: US (occurrence: US)
  Receive Date: 20251231
  Receipt Date: 20251231
  Transmission Date: 20260119
  Serious: No
  Sender: PFIZER
  Company Number: US-PFIZER INC-202500250123

PATIENT
  Age: 44 Year
  Sex: Male
  Weight: 70.3 kg

DRUGS (6)
  1. NURTEC ODT [Suspect]
     Active Substance: RIMEGEPANT SULFATE
     Indication: Migraine
     Dosage: 75 MG, ALTERNATE DAY
     Route: 048
  2. NURTEC ODT [Suspect]
     Active Substance: RIMEGEPANT SULFATE
     Dosage: 75 MG, ALTERNATE DAY
     Route: 048
  3. ONDANSETRON [Concomitant]
     Active Substance: ONDANSETRON
  4. FLUOROURACIL [Concomitant]
     Active Substance: FLUOROURACIL
     Indication: Pain management
  5. MAXALT [Concomitant]
     Active Substance: RIZATRIPTAN BENZOATE
  6. DOMEX [Concomitant]

REACTIONS (5)
  - Abdominal discomfort [Unknown]
  - Nausea [Unknown]
  - Gastrooesophageal reflux disease [Unknown]
  - Vomiting [Unknown]
  - Poor quality product administered [Unknown]
